FAERS Safety Report 6733696-X (Version None)
Quarter: 2010Q2

REPORT INFORMATION
  Report Type: 
  Country: None (occurrence: None)
  Receive Date: 20100520
  Receipt Date: 20100517
  Transmission Date: 20101027
  Serious: Yes (Death, Hospitalization)
  Sender: FDA-Public Use
  Company Number: IT-BAYER-201025170GPV

PATIENT
  Age: 87 Year
  Sex: Female

DRUGS (7)
  1. ASPIRIN [Suspect]
     Indication: DRUG USE FOR UNKNOWN INDICATION
     Dosage: TOTAL DAILY DOSE: 100 MG  UNIT DOSE: 100 MG
     Route: 048
     Dates: start: 20070511
  2. NORMIX [Concomitant]
  3. PANTOPAN [Concomitant]
  4. FERRO-GRAD C [Concomitant]
  5. TRAZODONE HCL [Concomitant]
  6. LOBIVON [Concomitant]
  7. INFLORAN [Concomitant]

REACTIONS (3)
  - AORTIC ANEURYSM RUPTURE [None]
  - EPISTAXIS [None]
  - RECTAL HAEMORRHAGE [None]
